FAERS Safety Report 9645727 (Version 1)
Quarter: 2013Q4

REPORT INFORMATION
  Report Type: Spontaneous
  Country: US (occurrence: None)
  Receive Date: 20131024
  Receipt Date: 20131024
  Transmission Date: 20140711
  Serious: Yes (Hospitalization)
  Sender: FDA-Public Use
  Company Number: None

PATIENT
  Age: 43 Year
  Sex: Male
  Weight: 141.07 kg

DRUGS (1)
  1. CHANTIX [Suspect]
     Indication: SMOKING CESSATION THERAPY
     Route: 048
     Dates: start: 20130725, end: 20130903

REACTIONS (10)
  - Neck pain [None]
  - Musculoskeletal pain [None]
  - Chest pain [None]
  - Muscle spasms [None]
  - Breast pain [None]
  - Pain in extremity [None]
  - Feeling abnormal [None]
  - Cough [None]
  - Abdominal distension [None]
  - Choking sensation [None]
